FAERS Safety Report 21449704 (Version 1)
Quarter: 2022Q4

REPORT INFORMATION
  Report Type: Spontaneous
  Country: US (occurrence: None)
  Receive Date: 20221011
  Receipt Date: 20221011
  Transmission Date: 20230113
  Serious: No
  Sender: FDA-Public Use
  Company Number: None

PATIENT
  Sex: Male

DRUGS (1)
  1. TALTZ [Suspect]
     Active Substance: IXEKIZUMAB
     Indication: Psoriasis
     Dosage: FREQUENCY : MONTHLY;?
     Route: 058
     Dates: start: 202201

REACTIONS (6)
  - Incorrect dose administered by device [None]
  - Psoriasis [None]
  - Device leakage [None]
  - Device defective [None]
  - Product administration error [None]
  - Wrong technique in product usage process [None]
